FAERS Safety Report 5711528-6 (Version None)
Quarter: 2008Q2

REPORT INFORMATION
  Report Type: 
  Country: None (occurrence: None)
  Receive Date: 20080418
  Receipt Date: 20080418
  Transmission Date: 20081010
  Serious: Yes (Life-Threatening)
  Sender: FDA-Public Use
  Company Number: None

PATIENT
  Sex: Male

DRUGS (4)
  1. FLUDARABINE PHOSPHATE [Suspect]
     Indication: MYELODYSPLASTIC SYNDROME
     Dosage: 30 MG/M2 DAILY IV DRIP
     Route: 041
     Dates: start: 20080314, end: 20080318
  2. THIOTEPA [Suspect]
     Indication: MYELODYSPLASTIC SYNDROME
     Dosage: 5 MG/KG DAILY IV DRIP
     Route: 041
     Dates: start: 20080314, end: 20080315
  3. TBI [Concomitant]
  4. RABBIT ATG [Concomitant]

REACTIONS (9)
  - ASCITES [None]
  - CARDIOMEGALY [None]
  - CHEST X-RAY ABNORMAL [None]
  - GENERALISED OEDEMA [None]
  - PERICARDIAL DISEASE [None]
  - PERICARDIAL EFFUSION [None]
  - PLEURAL EFFUSION [None]
  - PULMONARY CONGESTION [None]
  - PULMONARY OEDEMA [None]
